FAERS Safety Report 5708174-7 (Version None)
Quarter: 2008Q2

REPORT INFORMATION
  Report Type: 
  Country: None (occurrence: None)
  Receive Date: 20080414
  Receipt Date: 20080302
  Transmission Date: 20081010
  Serious: Yes (Death)
  Sender: FDA-Public Use
  Company Number: 77544

PATIENT
  Age: 85 Year
  Sex: Male
  Weight: 56 kg

DRUGS (3)
  1. SIMVASTATIN [Suspect]
     Indication: TRANSIENT ISCHAEMIC ATTACK
     Dosage: ORAL
     Route: 048
     Dates: start: 20080110, end: 20080112
  2. SIMVASTATIN [Suspect]
     Indication: TRANSIENT ISCHAEMIC ATTACK
     Dosage: ORAL
     Route: 048
     Dates: start: 20070101
  3. ASPIRIN [Suspect]
     Indication: TRANSIENT ISCHAEMIC ATTACK
     Dosage: ORAL
     Route: 048
     Dates: start: 20080110, end: 20080112

REACTIONS (6)
  - CEREBRAL HAEMORRHAGE [None]
  - COMA [None]
  - DIZZINESS [None]
  - FALL [None]
  - HEAD INJURY [None]
  - TREATMENT NONCOMPLIANCE [None]
